FAERS Safety Report 8376203-0 (Version None)
Quarter: 2012Q2

REPORT INFORMATION
  Report Type: 
  Country: None (occurrence: None)
  Receive Date: 20120522
  Receipt Date: 20120516
  Transmission Date: 20120825
  Serious: Yes (Hospitalization)
  Sender: FDA-Public Use
  Company Number: US-BAYER-2011-067932

PATIENT
  Age: 46 Year
  Sex: Female
  Weight: 67 kg

DRUGS (3)
  1. NEXIUM [Concomitant]
     Dosage: 40 MG, QD
     Route: 048
  2. YAZ [Suspect]
     Indication: MENORRHAGIA
     Dosage: UNK
     Route: 048
     Dates: start: 20080923, end: 20081016
  3. AUGMENTIN [Concomitant]
     Indication: LEUKOCYTOSIS

REACTIONS (5)
  - DEEP VEIN THROMBOSIS [None]
  - PAIN IN EXTREMITY [None]
  - ANXIETY [None]
  - OEDEMA PERIPHERAL [None]
  - ANHEDONIA [None]
